FAERS Safety Report 7270570-7 (Version None)
Quarter: 2011Q1

REPORT INFORMATION
  Report Type: 
  Country: None (occurrence: None)
  Receive Date: 20110202
  Receipt Date: 20090901
  Transmission Date: 20110831
  Serious: Yes (Death, Life-Threatening)
  Sender: FDA-Public Use
  Company Number: DE-JNJFOC-20110106713

PATIENT
  Age: 9 Decade
  Sex: Female

DRUGS (5)
  1. CLOPIDOGREL [Concomitant]
     Indication: ILL-DEFINED DISORDER
  2. ABCIXIMAB [Suspect]
     Indication: ACUTE MYOCARDIAL INFARCTION
     Route: 042
  3. ABCIXIMAB [Suspect]
     Indication: MYOCARDIAL INFARCTION
     Dosage: BETWEEN 14:01 AND 14:02
     Route: 022
     Dates: start: 20090825, end: 20090825
  4. ACETYLSALICYLIC ACID SRT [Concomitant]
     Indication: ILL-DEFINED DISORDER
  5. HEPARIN [Concomitant]
     Indication: ILL-DEFINED DISORDER

REACTIONS (1)
  - HAEMORRHAGE [None]
